FAERS Safety Report 15954252 (Version 1)
Quarter: 2019Q1

REPORT INFORMATION
  Report Type: Spontaneous
  Country: US (occurrence: US)
  Receive Date: 20190212
  Receipt Date: 20190212
  Transmission Date: 20190417
  Serious: Yes (Hospitalization)
  Sender: FDA-Public Use
  Company Number: US-PFIZER INC-2019063284

PATIENT
  Age: 82 Year
  Sex: Female

DRUGS (4)
  1. NUEDEXTA [Suspect]
     Active Substance: DEXTROMETHORPHAN HYDROBROMIDE\QUINIDINE SULFATE
     Dosage: 1 DF, 2X/DAY (DEXTROMETHORPHAN HYDROBROMIDE MONOHYDRATE: 20 MG/ QUINIDINE SULFATE DIHYDRATE: 10MG)
  2. XANAX [Suspect]
     Active Substance: ALPRAZOLAM
     Indication: PRODUCT USED FOR UNKNOWN INDICATION
     Dosage: UNK
  3. NUEDEXTA [Suspect]
     Active Substance: DEXTROMETHORPHAN HYDROBROMIDE\QUINIDINE SULFATE
     Indication: DEMENTIA ALZHEIMER^S TYPE
     Dosage: 1 DF, 1X/DAY (DEXTROMETHORPHAN HYDROBROMIDE MONOHYDRATE: 20 MG/ QUINIDINE SULFATE DIHYDRATE: 10MG)
     Route: 048
     Dates: start: 20170617
  4. ZOLOFT [Suspect]
     Active Substance: SERTRALINE HYDROCHLORIDE
     Indication: PRODUCT USED FOR UNKNOWN INDICATION
     Dosage: UNK, 1X/DAY

REACTIONS (5)
  - Pulmonary pain [Unknown]
  - Musculoskeletal pain [Unknown]
  - Panic attack [Unknown]
  - Feeling hot [Unknown]
  - Hypersomnia [Unknown]
